FAERS Safety Report 11953677 (Version 1)
Quarter: 2016Q1

REPORT INFORMATION
  Report Type: Report from Study
  Country: US (occurrence: US)
  Receive Date: 20160125
  Receipt Date: 20160125
  Transmission Date: 20160526
  Serious: No
  Sender: FDA-Public Use
  Company Number: US-ABBVIE-15K-163-1338625-00

PATIENT
  Age: 48 Year
  Sex: Female

DRUGS (3)
  1. PREDNISONE. [Suspect]
     Active Substance: PREDNISONE
     Indication: ERYTHEMA
  2. PREDNISONE. [Suspect]
     Active Substance: PREDNISONE
     Indication: SWELLING FACE
     Route: 065
     Dates: start: 20150118, end: 20150120
  3. HUMIRA [Suspect]
     Active Substance: ADALIMUMAB
     Indication: RHEUMATOID ARTHRITIS
     Route: 058
     Dates: start: 20141110, end: 20150106

REACTIONS (16)
  - Erythema [Recovering/Resolving]
  - Depression [Unknown]
  - Injection site swelling [Not Recovered/Not Resolved]
  - Pain [Recovering/Resolving]
  - Injection site erythema [Not Recovered/Not Resolved]
  - Dyspepsia [Not Recovered/Not Resolved]
  - Anxiety [Unknown]
  - Sunburn [Recovering/Resolving]
  - Blister [Recovering/Resolving]
  - Dry eye [Not Recovered/Not Resolved]
  - Rash macular [Recovering/Resolving]
  - Visual impairment [Not Recovered/Not Resolved]
  - Mood altered [Unknown]
  - Swelling face [Recovering/Resolving]
  - Blister rupture [Recovering/Resolving]
  - Lymphadenopathy [Not Recovered/Not Resolved]

NARRATIVE: CASE EVENT DATE: 201411
